FAERS Safety Report 20504933 (Version 1)
Quarter: 2022Q1

REPORT INFORMATION
  Report Type: Spontaneous
  Country: US (occurrence: US)
  Receive Date: 20220223
  Receipt Date: 20220223
  Transmission Date: 20220423
  Serious: No
  Sender: FDA-Public Use
  Company Number: US-AUROBINDO-AUR-APL-2021-037770

PATIENT
  Sex: Female

DRUGS (2)
  1. CEFDINIR [Suspect]
     Active Substance: CEFDINIR
     Indication: Ear infection
     Dosage: UNK
     Route: 065
  2. CEFPROZIL [Suspect]
     Active Substance: CEFPROZIL
     Indication: Ear infection
     Dosage: UNK
     Route: 048

REACTIONS (1)
  - Tooth discolouration [Not Recovered/Not Resolved]
